FAERS Safety Report 9274797 (Version 1)
Quarter: 2013Q2

REPORT INFORMATION
  Report Type: Spontaneous
  Country: JP (occurrence: None)
  Receive Date: 20130429
  Receipt Date: 20130429
  Transmission Date: 20140414
  Serious: Yes (Death)
  Sender: FDA-Public Use
  Company Number: TCI2013A02137

PATIENT
  Age: 83 Year
  Sex: Female

DRUGS (8)
  1. NESINA [Suspect]
     Indication: TYPE 2 DIABETES MELLITUS
     Route: 048
     Dates: start: 20120409, end: 20121004
  2. BLOPRESS (CANDESARTAN CILEXETIL) [Concomitant]
  3. LIPITOR (ATORVASTATIN CALCIUM) [Concomitant]
  4. WARFARIN (WARFARIN POTASSIUM) [Concomitant]
  5. SENNAL (SENNOSIDE A+B CALCIUM) [Concomitant]
  6. MAGNESIUM OXIDE [Concomitant]
  7. AGRAMATE (CALCIUM POLYSTYRENE SULFONATE) [Concomitant]
  8. LASIX (FUROSEMIDE) [Concomitant]

REACTIONS (1)
  - Sudden death [None]
